FAERS Safety Report 17511118 (Version 1)
Quarter: 2020Q1

REPORT INFORMATION
  Report Type: Report from Study
  Country: US (occurrence: US)
  Receive Date: 20200306
  Receipt Date: 20200306
  Transmission Date: 20200409
  Serious: Yes (Death)
  Sender: FDA-Public Use
  Company Number: US-PORTOLA PHARMACEUTICALS, INC.-2019US000159

PATIENT

DRUGS (3)
  1. ANDEXXA [Suspect]
     Active Substance: ANDEXANET ALFA
     Indication: PROCOAGULANT THERAPY
     Dosage: 800 MG, SINGLE
     Route: 040
  2. ELIQUIS [Concomitant]
     Active Substance: APIXABAN
  3. ANDEXXA [Suspect]
     Active Substance: ANDEXANET ALFA
     Dosage: 400 MG, SINGLE
     Route: 041

REACTIONS (1)
  - Death [Fatal]
